FAERS Safety Report 8267508-2 (Version None)
Quarter: 2012Q2

REPORT INFORMATION
  Report Type: 
  Country: None (occurrence: None)
  Receive Date: 20120409
  Receipt Date: 20120329
  Transmission Date: 20120825
  Serious: Yes (Life-Threatening)
  Sender: FDA-Public Use
  Company Number: JP-CELGENEUS-087-50794-12040584

PATIENT
  Sex: Male
  Weight: 59 kg

DRUGS (6)
  1. MAGNESIUM SULFATE [Concomitant]
     Route: 065
     Dates: start: 20120215
  2. MOTILIUM [Concomitant]
     Route: 065
     Dates: start: 20120217
  3. VIDAZA [Suspect]
     Dosage: 75 MILLIGRAM/SQ. METER
     Route: 058
     Dates: start: 20110213, end: 20110219
  4. NAPROXEN [Concomitant]
     Route: 065
     Dates: start: 20120207
  5. RABEPRAZOLE SODIUM [Concomitant]
     Route: 065
     Dates: start: 20120207
  6. AVELOX [Concomitant]
     Route: 065
     Dates: start: 20120207

REACTIONS (1)
  - WHITE BLOOD CELL COUNT DECREASED [None]
